FAERS Safety Report 8492542-7 (Version None)
Quarter: 2012Q3

REPORT INFORMATION
  Report Type: 
  Country: None (occurrence: None)
  Receive Date: 20120706
  Receipt Date: 20120628
  Transmission Date: 20120928
  Serious: Yes (Death)
  Sender: FDA-Public Use
  Company Number: IN-SANOFI-AVENTIS-2012SA046110

PATIENT
  Age: 59 Year
  Sex: Female

DRUGS (1)
  1. DOCETAXEL [Suspect]
     Route: 042
     Dates: start: 20120326, end: 20120611

REACTIONS (8)
  - HYPERTENSION [None]
  - OROPHARYNGEAL PAIN [None]
  - DIARRHOEA [None]
  - WHITE BLOOD CELL COUNT DECREASED [None]
  - RESPIRATORY DISORDER [None]
  - COUGH [None]
  - RESTLESSNESS [None]
  - PYREXIA [None]
